FAERS Safety Report 9747576 (Version 1)
Quarter: 2013Q4

REPORT INFORMATION
  Report Type: Spontaneous
  Country: US (occurrence: None)
  Receive Date: 20131205
  Receipt Date: 20131205
  Transmission Date: 20140711
  Serious: Yes (Other)
  Sender: FDA-Public Use
  Company Number: 001633653A

PATIENT
  Age: 27 Year
  Sex: Female

DRUGS (4)
  1. PROACTIV RENEWING CLEANSER [Suspect]
     Indication: ACNE
     Dosage: DERMAL
     Dates: start: 20131007, end: 20131012
  2. PROACTIV REPAIRING TREATMENT [Suspect]
     Indication: ACNE
     Dosage: DERMAL
     Dates: start: 20131007, end: 20131012
  3. PROACTIV ADVANCED DAILY OIL CONTROL [Suspect]
     Indication: ACNE
     Dosage: DERMAL
     Dates: start: 20131007, end: 20131012
  4. PROACTIV BLACKHEAD DISSOLVING GEL [Suspect]
     Indication: ACNE
     Dosage: DERMAL
     Dates: start: 20131007, end: 20131012

REACTIONS (3)
  - Swelling face [None]
  - Rash erythematous [None]
  - Urticaria [None]
